FAERS Safety Report 14642707 (Version 3)
Quarter: 2018Q2

REPORT INFORMATION
  Report Type: Report from Study
  Country: US (occurrence: US)
  Receive Date: 20180315
  Receipt Date: 20180626
  Transmission Date: 20180711
  Serious: Yes (Hospitalization, Other)
  Sender: FDA-Public Use
  Company Number: US-JNJFOC-20180307943

PATIENT
  Age: 57 Year
  Sex: Female
  Weight: 116.58 kg

DRUGS (8)
  1. XARELTO [Suspect]
     Active Substance: RIVAROXABAN
     Indication: THROMBOSIS
     Route: 048
     Dates: start: 201704, end: 201709
  2. PROAIR HFA [Concomitant]
     Active Substance: ALBUTEROL SULFATE
     Indication: RESPIRATORY DISORDER
     Route: 065
  3. SPIRIVA [Suspect]
     Active Substance: TIOTROPIUM BROMIDE MONOHYDRATE
     Indication: CHRONIC OBSTRUCTIVE PULMONARY DISEASE
     Route: 055
  4. OMEPRAZOLE. [Concomitant]
     Active Substance: OMEPRAZOLE
     Indication: GASTROOESOPHAGEAL REFLUX DISEASE
     Route: 065
  5. LOSARTAN. [Concomitant]
     Active Substance: LOSARTAN
     Indication: BLOOD PRESSURE ABNORMAL
     Route: 065
  6. ROBAXIN [Concomitant]
     Active Substance: METHOCARBAMOL
     Indication: MYALGIA
     Route: 065
  7. CALCIUM D3 [Suspect]
     Active Substance: CALCIUM\CHOLECALCIFEROL
     Indication: PRODUCT USED FOR UNKNOWN INDICATION
     Route: 065
  8. METHOCARBAMOL. [Concomitant]
     Active Substance: METHOCARBAMOL
     Indication: MUSCLE SPASMS
     Route: 065

REACTIONS (29)
  - Seizure [Unknown]
  - Food interaction [Unknown]
  - Cardiac valve disease [Unknown]
  - Muscle spasms [Unknown]
  - Chromaturia [Unknown]
  - Blood calcium decreased [Unknown]
  - Sensation of blood flow [Unknown]
  - Abdominal pain upper [Unknown]
  - Hernia [Unknown]
  - Food allergy [Unknown]
  - Haemorrhage [Unknown]
  - Migraine [Unknown]
  - Feeling hot [Unknown]
  - Influenza like illness [Unknown]
  - Rash [Unknown]
  - Tinnitus [Unknown]
  - Tremor [Unknown]
  - Arthralgia [Unknown]
  - Burning sensation [Unknown]
  - Eye pain [Unknown]
  - Sinus disorder [Unknown]
  - Fungal infection [Unknown]
  - Thinking abnormal [Unknown]
  - Disturbance in attention [Unknown]
  - Bone pain [Unknown]
  - Pain in jaw [Unknown]
  - Abnormal loss of weight [Recovering/Resolving]
  - Asthma [Unknown]
  - Alopecia [Unknown]

NARRATIVE: CASE EVENT DATE: 201704
